FAERS Safety Report 7996504-5 (Version None)
Quarter: 2011Q4

REPORT INFORMATION
  Report Type: 
  Country: None (occurrence: None)
  Receive Date: 20111220
  Receipt Date: 20111215
  Transmission Date: 20120403
  Serious: Yes (Hospitalization)
  Sender: FDA-Public Use
  Company Number: US-ASTRAZENECA-2011SE75865

PATIENT
  Age: 56 Year
  Sex: Female
  Weight: 63.5 kg

DRUGS (24)
  1. SEROQUEL [Suspect]
     Indication: BIPOLAR DISORDER
     Route: 048
     Dates: start: 20080101
  2. LEVOTHYROXINE SODIUM [Concomitant]
     Indication: THYROID DISORDER
     Route: 048
  3. MIRTAZAPINE [Concomitant]
     Indication: ANXIETY
     Route: 048
  4. ALPRAZOLAM [Concomitant]
     Indication: NERVOUSNESS
     Route: 048
  5. ALPRAZOLAM [Concomitant]
     Indication: DEPRESSION
     Route: 048
  6. CLOBETASOL PROPIONATE GEL [Concomitant]
     Indication: HERPES VIRUS INFECTION
     Dosage: AS NEEDED
     Route: 061
  7. ALPRAZOLAM [Concomitant]
     Indication: ANXIETY
     Route: 048
  8. MIRTAZAPINE [Concomitant]
     Indication: DEPRESSION
     Route: 048
  9. PROMEZHAPINE [Concomitant]
     Indication: NAUSEA
     Route: 048
  10. ACYCLOVIR [Concomitant]
     Indication: HERPES VIRUS INFECTION
     Route: 048
  11. ALPRAZOLAM [Concomitant]
     Route: 048
  12. NITROGLYCERIN [Concomitant]
     Indication: CHEST PAIN
     Dosage: AS NEEDED
     Route: 061
  13. OMEPRAZOLE [Concomitant]
     Indication: GASTROOESOPHAGEAL REFLUX DISEASE
     Route: 048
  14. ALPRAZOLAM [Concomitant]
     Route: 048
  15. PROMEZHAPINE [Concomitant]
     Indication: VOMITING
     Route: 048
  16. ALPRAZOLAM [Concomitant]
     Route: 048
  17. CLOPIDOGREL [Concomitant]
     Indication: BLOOD PRESSURE
     Route: 048
  18. LISINOPRIL [Concomitant]
     Indication: BLOOD PRESSURE ABNORMAL
     Route: 048
  19. GABAPENTIN [Concomitant]
     Indication: ARTHRITIS
     Route: 048
  20. CYCLOBENZAPRINE [Concomitant]
     Indication: ARTHRITIS
     Route: 048
  21. LIPITOR [Concomitant]
     Indication: BLOOD CHOLESTEROL ABNORMAL
     Route: 048
  22. METOPROLOL TITRATE [Concomitant]
     Indication: CARDIAC DISORDER
     Route: 048
  23. ASPIRIN [Concomitant]
     Indication: ANTICOAGULANT THERAPY
     Route: 048
     Dates: start: 20111128
  24. MUPIROCIN [Concomitant]
     Indication: HERPES VIRUS INFECTION
     Dosage: AS NEEDED
     Route: 061

REACTIONS (1)
  - MYOCARDIAL INFARCTION [None]
